FAERS Safety Report 23494055 (Version 2)
Quarter: 2024Q1

REPORT INFORMATION
  Report Type: Spontaneous
  Country: JP (occurrence: JP)
  Receive Date: 20240207
  Receipt Date: 20240212
  Transmission Date: 20240410
  Serious: Yes (Other)
  Sender: FDA-Public Use
  Company Number: JP-PFIZER INC-PV202400017739

PATIENT
  Age: 64 Year
  Sex: Female

DRUGS (5)
  1. PACLITAXEL [Suspect]
     Active Substance: PACLITAXEL
     Indication: Thymoma
     Dosage: UNK, 4 CYCLES, SECOND LINE CHEMOTHERAPY
  2. CARBOPLATIN [Suspect]
     Active Substance: CARBOPLATIN
     Indication: Thymoma
     Dosage: UNK, 4 CYCLES
  3. CARBOPLATIN [Suspect]
     Active Substance: CARBOPLATIN
     Dosage: UNK, 4 CYCLES, SECOND LINE CHEMOTHERAPY
  4. ETOPOSIDE [Suspect]
     Active Substance: ETOPOSIDE
     Indication: Thymoma
     Dosage: UNK, 4 CYCLES
  5. AMRUBICIN [Suspect]
     Active Substance: AMRUBICIN
     Indication: Thymoma
     Dosage: UNK, CYCLIC, THIRD LINE CHEMOTHERAPY, MONOTHERAPY

REACTIONS (3)
  - Second primary malignancy [Unknown]
  - Acute myeloid leukaemia [Not Recovered/Not Resolved]
  - Off label use [Unknown]
